FAERS Safety Report 4571188-7 (Version None)
Quarter: 2005Q1

REPORT INFORMATION
  Report Type: 
  Country: None (occurrence: None)
  Receive Date: 20050202
  Receipt Date: 20050120
  Transmission Date: 20050727
  Serious: Yes (Hospitalization)
  Sender: FDA-Public Use
  Company Number: 2005018225

PATIENT
  Sex: Male

DRUGS (1)
  1. CELEBRA (CELECOXIB) [Suspect]
     Indication: OSTEOARTHRITIS
     Dosage: 200 MG (100 MG, 2 IN 1 D); ORAL
     Route: 048
     Dates: start: 20041109, end: 20041128

REACTIONS (5)
  - BALANCE DISORDER [None]
  - CEREBRAL HAEMORRHAGE [None]
  - MEMORY IMPAIRMENT [None]
  - MOTOR DYSFUNCTION [None]
  - VISUAL ACUITY REDUCED [None]
